FAERS Safety Report 8227243-3 (Version None)
Quarter: 2012Q1

REPORT INFORMATION
  Report Type: 
  Country: None (occurrence: None)
  Receive Date: 20120322
  Receipt Date: 20120320
  Transmission Date: 20120608
  Serious: Yes (Other)
  Sender: FDA-Public Use
  Company Number: SI-B.I. PHARMACEUTICALS,INC./RIDGEFIELD-2012-AP-00213AP

PATIENT
  Sex: Female

DRUGS (8)
  1. SPIRONOLACTONE [Concomitant]
     Indication: CARDIAC FAILURE
     Dosage: 2.5 MG
     Dates: start: 20110721
  2. DESLORATADIN [Concomitant]
     Indication: HYPERTENSION
     Dosage: 5 MG
     Dates: start: 20100101
  3. BISOPROLOL FUMARATE [Concomitant]
     Indication: HYPERTENSION
     Dosage: 2.5 MG
     Dates: start: 20100101
  4. AMLODIPINE [Concomitant]
     Indication: HYPERTENSION
     Dosage: 10 MG
     Dates: start: 20100101
  5. PERINDOPRIL ERBUMINE [Concomitant]
     Indication: HYPERTENSION
     Dosage: 8 MG
     Dates: start: 20100101
  6. SPIRIVA [Suspect]
     Indication: CHRONIC OBSTRUCTIVE PULMONARY DISEASE
     Dosage: 18 MCG
     Route: 055
     Dates: start: 20110501
  7. OMEPRAZOLE [Concomitant]
     Indication: DYSPEPSIA
     Dosage: 20 MG
     Dates: start: 20110721
  8. INDAPAMID [Concomitant]
     Indication: HYPERTENSION
     Dosage: 2.5 MG
     Dates: start: 20100101, end: 20110721

REACTIONS (4)
  - CELLULITIS [None]
  - RIGHT VENTRICULAR FAILURE [None]
  - CARDIAC FAILURE [None]
  - HYPONATRAEMIA [None]
